FAERS Safety Report 9857448 (Version 2)
Quarter: 2014Q1

REPORT INFORMATION
  Report Type: Report from Study
  Country: FR (occurrence: FR)
  Receive Date: 20140131
  Receipt Date: 20140203
  Transmission Date: 20141002
  Serious: Yes (Hospitalization, Other)
  Sender: FDA-Public Use
  Company Number: FR-ROCHE-1336253

PATIENT
  Sex: Male

DRUGS (16)
  1. RITUXIMAB [Suspect]
     Indication: RHEUMATOID ARTHRITIS
     Route: 042
     Dates: start: 20070420
  2. RITUXIMAB [Suspect]
     Route: 042
     Dates: start: 20070504
  3. RITUXIMAB [Suspect]
     Route: 042
     Dates: start: 20071106
  4. RITUXIMAB [Suspect]
     Route: 042
     Dates: start: 20080620
  5. RITUXIMAB [Suspect]
     Route: 042
     Dates: start: 20120327
  6. RITUXIMAB [Suspect]
     Route: 042
     Dates: start: 20130611
  7. CORTANCYL [Concomitant]
     Route: 065
     Dates: start: 20070420
  8. CORTANCYL [Concomitant]
     Route: 065
     Dates: start: 20070504
  9. CORTANCYL [Concomitant]
     Route: 065
     Dates: start: 20071106
  10. CORTANCYL [Concomitant]
     Route: 065
     Dates: start: 20080620
  11. CORTANCYL [Concomitant]
     Route: 065
     Dates: start: 20130611
  12. METHOTREXATE [Concomitant]
     Route: 065
     Dates: start: 20071106
  13. METHOTREXATE [Concomitant]
     Route: 065
     Dates: start: 20080620
  14. METHOTREXATE [Concomitant]
     Route: 065
     Dates: start: 20120327
  15. LEFLUNOMIDE [Concomitant]
     Route: 065
     Dates: start: 20070420
  16. SOLU-MEDROL [Concomitant]

REACTIONS (2)
  - Diabetes mellitus inadequate control [Recovered/Resolved]
  - Hepatitis cholestatic [Recovered/Resolved]
